FAERS Safety Report 19792930 (Version 1)
Quarter: 2021Q3

REPORT INFORMATION
  Report Type: Spontaneous
  Country: GB (occurrence: GB)
  Receive Date: 20210906
  Receipt Date: 20210906
  Transmission Date: 20211014
  Serious: Yes (Other)
  Sender: FDA-Public Use
  Company Number: GB-PFIZER INC-2021304770

PATIENT
  Age: 55 Year
  Sex: Male
  Weight: 69.5 kg

DRUGS (5)
  1. DOCETAXEL. [Concomitant]
     Active Substance: DOCETAXEL
     Indication: ILL-DEFINED DISORDER
     Dosage: UNK
  2. OXALIPLATIN. [Suspect]
     Active Substance: OXALIPLATIN
     Indication: GASTRIC CANCER
     Dosage: 135 MG
     Route: 042
     Dates: start: 20210317
  3. FILGRASTIM [Concomitant]
     Active Substance: FILGRASTIM
     Indication: ILL-DEFINED DISORDER
     Dosage: UNK
  4. FOLINIC ACID [Concomitant]
     Active Substance: LEUCOVORIN
     Indication: ILL-DEFINED DISORDER
     Dosage: UNK
  5. 5 FLUOROURACIL [FLUOROURACIL] [Concomitant]
     Active Substance: FLUOROURACIL
     Indication: ILL-DEFINED DISORDER
     Dosage: UNK

REACTIONS (5)
  - Abdominal pain upper [Recovered/Resolved]
  - Paraesthesia [Unknown]
  - Off label use [Unknown]
  - Laryngospasm [Recovered/Resolved]
  - Oxygen saturation decreased [Recovered/Resolved]

NARRATIVE: CASE EVENT DATE: 20210317
